FAERS Safety Report 14081029 (Version 1)
Quarter: 2017Q4

REPORT INFORMATION
  Report Type: Spontaneous
  Country: TR (occurrence: TR)
  Receive Date: 20171012
  Receipt Date: 20171012
  Transmission Date: 20180321
  Serious: Yes (Death, Life-Threatening, Other)
  Sender: FDA-Public Use
  Company Number: TR-PRINSTON PHARMACEUTICAL INC.-2017PRN00477

PATIENT
  Sex: Female
  Weight: 1.88 kg

DRUGS (1)
  1. VENLAFAXINE [Suspect]
     Active Substance: VENLAFAXINE HYDROCHLORIDE
     Dosage: 75 MG, 1X/DAY
     Route: 064

REACTIONS (3)
  - Cardio-respiratory arrest [Fatal]
  - Foetal exposure during pregnancy [Recovered/Resolved]
  - VACTERL syndrome [Not Recovered/Not Resolved]
